FAERS Safety Report 10893249 (Version 12)
Quarter: 2015Q3

REPORT INFORMATION
  Report Type: Spontaneous
  Country: US (occurrence: US)
  Receive Date: 20150306
  Receipt Date: 20150730
  Transmission Date: 20151125
  Serious: No
  Sender: FDA-Public Use
  Company Number: US-009507513-1503USA001124

PATIENT
  Sex: Female
  Weight: 61.22 kg

DRUGS (1)
  1. IMPLANON [Suspect]
     Active Substance: ETONOGESTREL
     Indication: CONTRACEPTION
     Dosage: 1 DF (1 ROD EVERY THREE YEARS)
     Route: 059
     Dates: start: 20120114

REACTIONS (4)
  - Medical device complication [Not Recovered/Not Resolved]
  - Device difficult to use [Not Recovered/Not Resolved]
  - Progesterone increased [Unknown]
  - Incorrect drug administration duration [Unknown]

NARRATIVE: CASE EVENT DATE: 20150114
